APPROVED DRUG PRODUCT: ALINIA
Active Ingredient: NITAZOXANIDE
Strength: 100MG/5ML
Dosage Form/Route: FOR SUSPENSION;ORAL
Application: N021498 | Product #001
Applicant: ROMARK LABORATORIES
Approved: Nov 22, 2002 | RLD: Yes | RS: No | Type: DISCN